FAERS Safety Report 5507732-2 (Version None)
Quarter: 2007Q4

REPORT INFORMATION
  Report Type: 
  Country: None (occurrence: None)
  Receive Date: 20071102
  Receipt Date: 20071026
  Transmission Date: 20080405
  Serious: Yes (Hospitalization, Disabling, Other)
  Sender: FDA-Public Use
  Company Number: E2090-00316-SPO-DE

PATIENT
  Age: 32 Year
  Sex: Male
  Weight: 45 kg

DRUGS (2)
  1. ZONEGRAN [Suspect]
     Indication: EPILEPSY
     Dosage: 400 MG, 1 IN 1 D
     Dates: start: 20060101
  2. PHENYTOIN [Concomitant]

REACTIONS (2)
  - CACHEXIA [None]
  - WEIGHT DECREASED [None]
